FAERS Safety Report 19982908 (Version 1)
Quarter: 2021Q4

REPORT INFORMATION
  Report Type: Spontaneous
  Country: US (occurrence: US)
  Receive Date: 20211021
  Receipt Date: 20211021
  Transmission Date: 20220303
  Serious: No
  Sender: FDA-Public Use
  Company Number: None

PATIENT
  Age: 36 Year
  Sex: Male

DRUGS (1)
  1. OTEZLA [Suspect]
     Active Substance: APREMILAST
     Indication: Psoriasis
     Route: 002
     Dates: start: 20210701, end: 20211013

REACTIONS (4)
  - Nausea [None]
  - Vomiting [None]
  - Decreased appetite [None]
  - Hyperhidrosis [None]

NARRATIVE: CASE EVENT DATE: 20211013
